FAERS Safety Report 7528600-0 (Version None)
Quarter: 2011Q2

REPORT INFORMATION
  Report Type: 
  Country: None (occurrence: None)
  Receive Date: 20110607
  Receipt Date: 20040610
  Transmission Date: 20111010
  Serious: Yes (Hospitalization)
  Sender: FDA-Public Use
  Company Number: PHHO2004US08359

PATIENT
  Sex: Male
  Weight: 79.63 kg

DRUGS (1)
  1. GLEEVEC [Suspect]
     Indication: ACUTE MYELOID LEUKAEMIA
     Dosage: 1200 MG, UNK
     Route: 048
     Dates: start: 20040129, end: 20040422

REACTIONS (1)
  - MENINGITIS HERPES [None]
